FAERS Safety Report 5947267-6 (Version None)
Quarter: 2008Q4

REPORT INFORMATION
  Report Type: 
  Country: None (occurrence: None)
  Receive Date: 20081110
  Receipt Date: 20081104
  Transmission Date: 20090506
  Serious: Yes (Death)
  Sender: FDA-Public Use
  Company Number: US-GILEAD-2008-0018324

PATIENT
  Sex: Female

DRUGS (7)
  1. LETAIRIS [Suspect]
     Indication: PULMONARY ARTERIAL HYPERTENSION
     Route: 048
     Dates: start: 20080501
  2. PREDNISONE TAB [Concomitant]
     Indication: INTERSTITIAL LUNG DISEASE
  3. CYTOXAN [Concomitant]
     Indication: INTERSTITIAL LUNG DISEASE
  4. LASIX [Concomitant]
     Indication: CARDIAC FAILURE
  5. ALDACTONE [Concomitant]
     Indication: CARDIAC FAILURE
  6. BACTRIM [Concomitant]
     Indication: PROPHYLAXIS
  7. COLACE [Concomitant]
     Indication: CONSTIPATION

REACTIONS (1)
  - PULMONARY FIBROSIS [None]
